FAERS Safety Report 4283868-1 (Version None)
Quarter: 2004Q1

REPORT INFORMATION
  Report Type: 
  Country: None (occurrence: None)
  Receive Date: 20040130
  Receipt Date: 20040121
  Transmission Date: 20041129
  Serious: Yes (Other)
  Sender: FDA-Public Use
  Company Number: 2002113437US

PATIENT
  Age: 31 Year
  Sex: Female
  Weight: 59 kg

DRUGS (1)
  1. DEPO-PROVERA [Suspect]
     Indication: CONTRACEPTION
     Dosage: 150 MG, SINGLE, INTRAMUSCULAR
     Route: 030
     Dates: start: 20020225, end: 20020225

REACTIONS (9)
  - CLAVICLE FRACTURE [None]
  - INSOMNIA [None]
  - JOINT DISLOCATION [None]
  - JOINT SPRAIN [None]
  - MUSCLE STRAIN [None]
  - MYOFASCIAL PAIN SYNDROME [None]
  - ROAD TRAFFIC ACCIDENT [None]
  - ROTATOR CUFF SYNDROME [None]
  - SYNCOPE VASOVAGAL [None]
